FAERS Safety Report 18326186 (Version 9)
Quarter: 2023Q2

REPORT INFORMATION
  Report Type: Report from Study
  Country: AT (occurrence: AT)
  Receive Date: 20200929
  Receipt Date: 20230403
  Transmission Date: 20230721
  Serious: Yes (Hospitalization, Other)
  Sender: FDA-Public Use
  Company Number: AT-ROCHE-2215193

PATIENT
  Age: 63 Year
  Sex: Female
  Weight: 80.4 kg

DRUGS (49)
  1. TRASTUZUMAB [Suspect]
     Active Substance: TRASTUZUMAB
     Indication: Breast cancer metastatic
     Dosage: 624 MG, QD, MOST RECENT DOSE PRIOR TO THE
     Route: 042
     Dates: start: 20170224, end: 20170224
  2. TRASTUZUMAB [Suspect]
     Active Substance: TRASTUZUMAB
     Dosage: 624 MG, QD(MOST RECENT DOSE)
     Route: 042
     Dates: end: 20170810
  3. FULVESTRANT [Suspect]
     Active Substance: FULVESTRANT
     Indication: Breast cancer
     Dosage: 500 MG, BIWEEKLY(MOST RECENT D
     Route: 030
     Dates: end: 20171115
  4. FULVESTRANT [Suspect]
     Active Substance: FULVESTRANT
     Indication: Breast cancer metastatic
  5. CAPECITABINE [Suspect]
     Active Substance: CAPECITABINE
     Indication: Breast cancer
     Dosage: 3500MG, QD(MOST RECENT DOSE
     Route: 048
     Dates: start: 20191002, end: 20200107
  6. CAPECITABINE [Suspect]
     Active Substance: CAPECITABINE
     Indication: Breast cancer metastatic
  7. VINORELBINE [Suspect]
     Active Substance: VINORELBINE TARTRATE
     Indication: Breast cancer
     Dosage: 45 MILLIGRAM, Q3W
     Route: 042
     Dates: start: 20200422
  8. VINORELBINE [Suspect]
     Active Substance: VINORELBINE TARTRATE
     Indication: Breast cancer metastatic
  9. LAPATINIB [Suspect]
     Active Substance: LAPATINIB
     Indication: Breast cancer
     Dosage: 1250 MG, QD(MOST RECENT DOSE PRI
     Route: 048
     Dates: start: 20191002, end: 20200107
  10. LAPATINIB [Suspect]
     Active Substance: LAPATINIB
     Indication: Breast cancer metastatic
  11. PERTUZUMAB [Suspect]
     Active Substance: PERTUZUMAB
     Indication: Breast cancer metastatic
     Dosage: 840 MG, QD(MOST RECENT DOSE PRIO
     Route: 042
     Dates: start: 20170224, end: 20170224
  12. PERTUZUMAB [Suspect]
     Active Substance: PERTUZUMAB
     Dosage: 840 MILLIGRAM, QD
     Route: 042
     Dates: end: 20170317
  13. ADO-TRASTUZUMAB EMTANSINE [Suspect]
     Active Substance: ADO-TRASTUZUMAB EMTANSINE
     Indication: Breast cancer
     Dosage: 270 MILLIGRAM, Q3W
     Route: 042
     Dates: start: 20190306, end: 20190909
  14. ADO-TRASTUZUMAB EMTANSINE [Suspect]
     Active Substance: ADO-TRASTUZUMAB EMTANSINE
     Indication: Breast cancer metastatic
  15. DOCETAXEL [Suspect]
     Active Substance: DOCETAXEL
     Indication: Breast cancer metastatic
     Dosage: 190 MG, Q3W, MOST RECENT DOS
     Route: 042
     Dates: start: 20170224, end: 20170317
  16. DOCETAXEL [Suspect]
     Active Substance: DOCETAXEL
     Dosage: 190 MG, Q3W(MOST RECENT DOSE PRIOR)
     Route: 042
     Dates: end: 20170609
  17. BLEOMYCIN [Suspect]
     Active Substance: BLEOMYCIN SULFATE
     Indication: Breast cancer metastatic
     Dosage: 26.85 MG, QD, DRUG WAS DISCONTINUED
     Route: 042
     Dates: start: 20200519, end: 20200519
  18. BLEOMYCIN [Suspect]
     Active Substance: BLEOMYCIN SULFATE
     Dosage: 1 DOSAGE FORM, QD, DRUG WAS DISCONTINUE
     Route: 042
     Dates: start: 20210105, end: 20210105
  19. Leukichtan [Concomitant]
     Dosage: UNK
     Route: 065
     Dates: start: 20200430, end: 20200515
  20. ZOFRAN [Concomitant]
     Active Substance: ONDANSETRON HYDROCHLORIDE
     Dosage: UNK
     Route: 065
     Dates: start: 20200506
  21. OLIVE OIL [Concomitant]
     Active Substance: OLIVE OIL
     Indication: Paronychia
     Dosage: UNK
     Route: 065
     Dates: start: 20191002, end: 20200512
  22. Kalioral [Concomitant]
     Dosage: UNK
     Route: 065
     Dates: start: 20200427, end: 20200428
  23. FUROSEMIDE [Concomitant]
     Active Substance: FUROSEMIDE
     Dosage: UNK(ONGOING, NOT CHECKED)
     Route: 065
     Dates: start: 20170810, end: 20171213
  24. EMEND [Concomitant]
     Active Substance: APREPITANT
     Dosage: UNK
     Route: 065
     Dates: start: 20200428, end: 20200430
  25. BETAISODONA [Concomitant]
     Active Substance: POVIDONE-IODINE
     Indication: Skin fissures
     Dosage: UNK(ONGOING = NOT CHECKED)
     Route: 065
     Dates: start: 20200430, end: 20200515
  26. KCL [Concomitant]
     Active Substance: POTASSIUM CHLORIDE
     Dosage: UNK
     Route: 065
     Dates: start: 20170429
  27. EDOXABAN TOSYLATE [Concomitant]
     Active Substance: EDOXABAN TOSYLATE
     Dosage: UNK
     Route: 065
     Dates: start: 20191120, end: 20200608
  28. ACETAMINOPHEN [Concomitant]
     Active Substance: ACETAMINOPHEN
     Dosage: UNK
     Route: 065
     Dates: start: 20200506
  29. TAZOBACTAM [Concomitant]
     Active Substance: TAZOBACTAM
     Indication: Streptococcal sepsis
     Dosage: UNK
     Route: 065
     Dates: start: 20200423, end: 20200504
  30. FENTANYL [Concomitant]
     Active Substance: FENTANYL
     Dosage: UNK
     Route: 065
     Dates: start: 20200515
  31. PANTOPRAZOLE SODIUM [Concomitant]
     Active Substance: PANTOPRAZOLE SODIUM
     Dosage: UNK
     Route: 065
     Dates: start: 20170722, end: 20180327
  32. PANTOPRAZOLE SODIUM [Concomitant]
     Active Substance: PANTOPRAZOLE SODIUM
     Dosage: UNK
     Route: 065
     Dates: start: 20200506, end: 20200519
  33. LOVENOX [Concomitant]
     Active Substance: ENOXAPARIN SODIUM
     Dosage: UNK
     Route: 065
     Dates: start: 20170224, end: 20171130
  34. PREGABALIN [Concomitant]
     Active Substance: PREGABALIN
     Dosage: UNK
     Route: 065
     Dates: start: 20190821
  35. LEVOFLOXACIN [Concomitant]
     Active Substance: LEVOFLOXACIN
     Dosage: UNK
     Route: 065
     Dates: start: 20200506, end: 20200512
  36. DEXAMETHASONE [Concomitant]
     Active Substance: DEXAMETHASONE
     Indication: Brain oedema
     Dosage: ONGOING = NOT CHECKED
     Route: 065
     Dates: start: 20171007, end: 20171008
  37. DEXAMETHASONE [Concomitant]
     Active Substance: DEXAMETHASONE
     Dosage: UNK
     Route: 065
     Dates: start: 20171004, end: 20171006
  38. DEXAMETHASONE [Concomitant]
     Active Substance: DEXAMETHASONE
     Dosage: UNK
     Route: 065
     Dates: start: 20200422, end: 20200505
  39. DEXAMETHASONE [Concomitant]
     Active Substance: DEXAMETHASONE
     Dosage: UNK
     Route: 065
     Dates: start: 20170104, end: 20170106
  40. DEXAMETHASONE [Concomitant]
     Active Substance: DEXAMETHASONE
     Dosage: UNK
     Route: 065
     Dates: start: 20170107, end: 20170108
  41. EUTHYROX [Concomitant]
     Active Substance: LEVOTHYROXINE SODIUM
     Dosage: UNK
     Route: 065
     Dates: start: 20170303
  42. Novalgin [Concomitant]
     Dosage: UNK
     Route: 065
     Dates: start: 20170329, end: 20180807
  43. XGEVA [Concomitant]
     Active Substance: DENOSUMAB
     Dosage: UNK
     Route: 065
     Dates: start: 20170202
  44. NERIFORTE [Concomitant]
     Indication: Skin fissures
     Dosage: UNK
     Route: 065
     Dates: start: 20200430, end: 20200515
  45. Paspertin [Concomitant]
     Dosage: UNK
     Route: 065
     Dates: start: 20200506
  46. VITAMINS WITH MINERALS [Concomitant]
     Active Substance: MINERALS\VITAMINS
     Dosage: UNK(ONGOING, CHECKED)
     Route: 065
     Dates: start: 20170203
  47. Oleovit [Concomitant]
     Dosage: UNK
     Route: 065
     Dates: start: 20170329
  48. Oleovit [Concomitant]
     Dosage: UNK
     Route: 065
     Dates: start: 20170329
  49. SILICON [Concomitant]
     Active Substance: SILICON
     Indication: Skin fissures
     Dosage: ONGOING = NOT CHECKED
     Route: 065
     Dates: start: 20200521, end: 20200602

REACTIONS (11)
  - Pseudomonal sepsis [Recovered/Resolved]
  - Streptococcal sepsis [Recovered/Resolved]
  - Metastases to lymph nodes [Not Recovered/Not Resolved]
  - Metastases to central nervous system [Not Recovered/Not Resolved]
  - Vascular device infection [Recovered/Resolved]
  - Brain oedema [Not Recovered/Not Resolved]
  - Nausea [Recovered/Resolved]
  - Fatigue [Not Recovered/Not Resolved]
  - Vomiting [Recovered/Resolved]
  - Back pain [Recovered/Resolved]
  - Pleural effusion [Recovered/Resolved]

NARRATIVE: CASE EVENT DATE: 20170921
